FAERS Safety Report 14244048 (Version 3)
Quarter: 2018Q3

REPORT INFORMATION
  Report Type: Report from Study
  Country: US (occurrence: US)
  Receive Date: 20171201
  Receipt Date: 20180730
  Transmission Date: 20181010
  Serious: Yes (Other)
  Sender: FDA-Public Use
  Company Number: US-AMGEN-USASL2017178957

PATIENT
  Sex: Male

DRUGS (2)
  1. REPATHA [Suspect]
     Active Substance: EVOLOCUMAB
     Indication: BLOOD CHOLESTEROL INCREASED
     Dosage: 140 MG, Q2WK
     Route: 065
  2. REPATHA [Suspect]
     Active Substance: EVOLOCUMAB
     Indication: HYPERCHOLESTEROLAEMIA

REACTIONS (7)
  - Therapeutic response unexpected [Unknown]
  - Fatigue [Unknown]
  - Rhinorrhoea [Unknown]
  - Memory impairment [Unknown]
  - Nail growth abnormal [Unknown]
  - Lacrimation increased [Unknown]
  - Laceration [Recovered/Resolved]
